FAERS Safety Report 8775743 (Version 1)
Quarter: 2012Q4

REPORT INFORMATION
  Report Type: Report from Study
  Country: GB (occurrence: GB)
  Receive Date: 20120916
  Receipt Date: 20120916
  Transmission Date: 20130627
  Serious: Yes (Hospitalization)
  Sender: FDA-Public Use
  Company Number: GB-ASTRAZENECA-2012SE65881

PATIENT
  Age: 25549 Day
  Sex: Male
  Weight: 77.6 kg

DRUGS (13)
  1. VANDETANIB [Suspect]
     Indication: ADENOCARCINOMA PANCREAS
     Route: 048
     Dates: start: 20111215, end: 20120125
  2. VANDETANIB [Suspect]
     Indication: ADENOCARCINOMA PANCREAS
     Route: 048
     Dates: start: 20120208, end: 20120418
  3. VANDETANIB [Suspect]
     Indication: ADENOCARCINOMA PANCREAS
     Route: 048
     Dates: start: 20120516
  4. GEMCITABINE [Suspect]
     Indication: ADENOCARCINOMA PANCREAS
     Route: 042
     Dates: start: 20111215, end: 20120125
  5. GEMCITABINE [Suspect]
     Indication: ADENOCARCINOMA PANCREAS
     Route: 042
     Dates: start: 20120208, end: 20120418
  6. GEMCITABINE [Suspect]
     Indication: ADENOCARCINOMA PANCREAS
     Route: 042
     Dates: start: 20120516, end: 20120822
  7. PREDNISOLONE [Concomitant]
     Indication: SKIN REACTION
     Route: 048
     Dates: start: 20110815
  8. ONDANSETRON [Concomitant]
     Indication: ANTIEMETIC SUPPORTIVE CARE
     Route: 042
     Dates: start: 20111214
  9. DEXAMETHASONE [Concomitant]
     Indication: ANTIEMETIC SUPPORTIVE CARE
     Route: 042
     Dates: start: 20111214
  10. FYBOGEL [Concomitant]
     Indication: CONSTIPATION PROPHYLAXIS
     Route: 048
     Dates: start: 20120226
  11. LACTULOSE [Concomitant]
     Indication: CONSTIPATION PROPHYLAXIS
     Route: 048
     Dates: start: 20110615
  12. LANSOPRAZOLE [Concomitant]
     Indication: DYSPEPSIA
     Route: 048
  13. CREON [Concomitant]
     Indication: DYSPEPSIA
     Route: 048
     Dates: start: 20110615

REACTIONS (1)
  - Febrile neutropenia [Not Recovered/Not Resolved]
